FAERS Safety Report 9617150 (Version 3)
Quarter: 2013Q4

REPORT INFORMATION
  Report Type: Spontaneous
  Country: JP (occurrence: JP)
  Receive Date: 20131011
  Receipt Date: 20131108
  Transmission Date: 20140711
  Serious: Yes (Hospitalization)
  Sender: FDA-Public Use
  Company Number: JP-B.I. PHARMACEUTICALS,INC./RIDGEFIELD-2013-BI-30586NB

PATIENT
  Age: 87 Year
  Sex: Male
  Weight: 55 kg

DRUGS (2)
  1. PRAZAXA [Suspect]
     Dosage: 220 MG
     Route: 048
     Dates: end: 20130918
  2. PRAZAXA [Suspect]
     Dosage: 220 MG
     Route: 048
     Dates: start: 20130927

REACTIONS (4)
  - Compression fracture [Not Recovered/Not Resolved]
  - Melaena [Recovered/Resolved]
  - Anaemia [Recovered/Resolved]
  - Hyperthermia [Recovered/Resolved]
